FAERS Safety Report 14535215 (Version 11)
Quarter: 2019Q1

REPORT INFORMATION
  Report Type: Spontaneous
  Country: CA (occurrence: CA)
  Receive Date: 20180215
  Receipt Date: 20190307
  Transmission Date: 20190417
  Serious: Yes (Other)
  Sender: FDA-Public Use
  Company Number: CA-CELLTRION INC.-2018CA017660

PATIENT

DRUGS (10)
  1. INFLECTRA [Suspect]
     Active Substance: INFLIXIMAB-DYYB
     Dosage: 400 MG, (EVERY 0, 2, 6 WEEKS, THEN EVERY 8 WEEKS)
     Route: 042
     Dates: start: 20180118
  2. INFLECTRA [Suspect]
     Active Substance: INFLIXIMAB-DYYB
     Indication: CROHN^S DISEASE
     Dosage: 400 MG, (EVERY 0, 2, 6 WEEKS, THEN EVERY 8 WEEKS)
     Route: 042
     Dates: start: 20171211
  3. INFLECTRA [Suspect]
     Active Substance: INFLIXIMAB-DYYB
     Dosage: 500 MG, (EVERY 6 WEEKS)
     Route: 042
     Dates: start: 20180627, end: 20180627
  4. INFLECTRA [Suspect]
     Active Substance: INFLIXIMAB-DYYB
     Dosage: 500 MG, (EVERY 6 WEEKS)
     Route: 042
     Dates: start: 20180807
  5. INFLECTRA [Suspect]
     Active Substance: INFLIXIMAB-DYYB
     Dosage: 400 MG, EVERY 6 WEEKS
     Route: 042
     Dates: start: 20180514, end: 20180514
  6. IMURAN [Concomitant]
     Active Substance: AZATHIOPRINE
     Dosage: 175 MG, DAILY
  7. INFLECTRA [Suspect]
     Active Substance: INFLIXIMAB-DYYB
     Dosage: 400 MG, (EVERY 0, 2, 6 WEEKS, THEN EVERY 8 WEEKS)
     Route: 042
     Dates: start: 20180319, end: 20180319
  8. ZOLOFT [Concomitant]
     Active Substance: SERTRALINE HYDROCHLORIDE
     Dosage: 150 MG, DAILY
  9. INFLECTRA [Suspect]
     Active Substance: INFLIXIMAB-DYYB
     Dosage: 500 MG, (EVERY 6 WEEKS)
     Route: 042
     Dates: start: 20180921
  10. HUMIRA [Concomitant]
     Active Substance: ADALIMUMAB
     Dosage: UNK

REACTIONS (15)
  - Inflammatory bowel disease [Unknown]
  - Product use issue [Unknown]
  - Malaise [Unknown]
  - Arthralgia [Recovered/Resolved]
  - Faeces discoloured [Unknown]
  - Anal fissure [Not Recovered/Not Resolved]
  - Therapeutic response shortened [Unknown]
  - Drug level above therapeutic [Unknown]
  - Constipation [Recovered/Resolved]
  - Abdominal distension [Recovered/Resolved]
  - Diverticulitis [Unknown]
  - Abdominal pain [Recovered/Resolved]
  - Inflammation [Unknown]
  - Steatorrhoea [Unknown]
  - Uveitis [Not Recovered/Not Resolved]

NARRATIVE: CASE EVENT DATE: 20171227
